FAERS Safety Report 21983541 (Version 1)
Quarter: 2023Q1

REPORT INFORMATION
  Report Type: Other
  Country: US (occurrence: US)
  Receive Date: 20230213
  Receipt Date: 20230213
  Transmission Date: 20230417
  Serious: No
  Sender: FDA-Public Use
  Company Number: US-GLENMARK PHARMACEUTICALS-2022GMK073344

PATIENT

DRUGS (1)
  1. ZONISAMIDE [Suspect]
     Active Substance: ZONISAMIDE
     Indication: Product used for unknown indication
     Dosage: UNK
     Route: 065
     Dates: start: 202106, end: 20220508

REACTIONS (3)
  - Adverse drug reaction [Unknown]
  - Recalled product administered [Unknown]
  - Recalled product [Unknown]
